FAERS Safety Report 5006179-5 (Version None)
Quarter: 2006Q1

REPORT INFORMATION
  Report Type: 
  Country: None (occurrence: None)
  Receive Date: 20060327
  Receipt Date: 20060127
  Transmission Date: 20060701
  Serious: No
  Sender: FDA-Public Use
  Company Number: 218791

PATIENT
  Age: 78 Year
  Sex: Male
  Weight: 72 kg

DRUGS (3)
  1. AVASTIN [Suspect]
     Indication: COLORECTAL CANCER METASTATIC
     Dosage: 720 MG, Q2W, INTRAVENOUS
     Route: 042
     Dates: start: 20051003
  2. LEUCOVORIN CALCIUM [Concomitant]
  3. CPT-11 (IRINOTECAN HYDROCHLORIDE) [Concomitant]

REACTIONS (1)
  - DERMATITIS ACNEIFORM [None]
